FAERS Safety Report 8301469-2 (Version None)
Quarter: 2012Q2

REPORT INFORMATION
  Report Type: 
  Country: None (occurrence: None)
  Receive Date: 20120420
  Receipt Date: 20120410
  Transmission Date: 20120825
  Serious: Yes (Other)
  Sender: FDA-Public Use
  Company Number: PHHY2011MX94114

PATIENT
  Age: 72 Year
  Sex: Female

DRUGS (4)
  1. RASILEZ [Suspect]
     Indication: HYPERTENSION
     Dosage: 1 DF, UNK
     Dates: start: 20090601
  2. RASILEZ [Suspect]
     Dosage: 1.5 DF, QD
     Route: 048
     Dates: start: 20110611
  3. BISOPROLOL FUMARATE [Concomitant]
     Indication: HYPERTENSION
     Dosage: 1 DF, QD
     Route: 048
  4. VALSARTAN [Concomitant]
     Indication: HYPERTENSION
     Dosage: 1 DF, QD
     Route: 048

REACTIONS (10)
  - CARDIOVASCULAR INSUFFICIENCY [None]
  - VISION BLURRED [None]
  - EYE SWELLING [None]
  - EYE PAIN [None]
  - DIPLOPIA [None]
  - CALCIUM DEFICIENCY [None]
  - GAIT DISTURBANCE [None]
  - BURNING SENSATION [None]
  - SPINAL DISORDER [None]
  - MUSCLE SPASMS [None]
